FAERS Safety Report 4784388-8 (Version None)
Quarter: 2005Q3

REPORT INFORMATION
  Report Type: 
  Country: None (occurrence: None)
  Receive Date: 20050930
  Receipt Date: 20050921
  Transmission Date: 20060218
  Serious: Yes (Other)
  Sender: FDA-Public Use
  Company Number: GB-ABBOTT-05P-167-0312179-00

PATIENT
  Sex: Female

DRUGS (2)
  1. EPILIM [Suspect]
     Indication: EPILEPSY
  2. VIGABATRIN [Suspect]
     Indication: EPILEPSY

REACTIONS (10)
  - ARRESTED LABOUR [None]
  - CAESAREAN SECTION [None]
  - CYANOSIS [None]
  - DRUG EXPOSURE DURING PREGNANCY [None]
  - EPILEPSY [None]
  - FALL [None]
  - GESTATIONAL DIABETES [None]
  - MECONIUM STAIN [None]
  - PREMATURE LABOUR [None]
  - UNEVALUABLE EVENT [None]
